FAERS Safety Report 25880326 (Version 1)
Quarter: 2025Q4

REPORT INFORMATION
  Report Type: Spontaneous
  Country: US (occurrence: US)
  Receive Date: 20251004
  Receipt Date: 20251004
  Transmission Date: 20260117
  Serious: No
  Sender: BRISTOL-MYERS SQUIBB COMPANY
  Company Number: US-BRISTOL-MYERS SQUIBB COMPANY-2025-135322

PATIENT
  Age: 68 Year
  Sex: Male
  Weight: 140.16 kg

DRUGS (1)
  1. REVLIMID [Suspect]
     Active Substance: LENALIDOMIDE
     Indication: Plasma cell myeloma
     Dosage: 10MG (1 CAPSULE) ORALLY ONCE DAILY ON DAYS 1-21 EVERY 28 DAY CYCLE

REACTIONS (1)
  - Diarrhoea [Unknown]
